FAERS Safety Report 12120599 (Version 1)
Quarter: 2016Q1

REPORT INFORMATION
  Report Type: Spontaneous
  Country: US (occurrence: US)
  Receive Date: 20160226
  Receipt Date: 20160226
  Transmission Date: 20160526
  Serious: Yes (Other)
  Sender: FDA-Public Use
  Company Number: US-SA-2016SA038325

PATIENT
  Sex: Female

DRUGS (1)
  1. AUBAGIO [Suspect]
     Active Substance: TERIFLUNOMIDE
     Indication: MULTIPLE SCLEROSIS
     Route: 065
     Dates: start: 20130518

REACTIONS (8)
  - Sepsis [Unknown]
  - Urinary tract infection [Unknown]
  - Fatigue [Unknown]
  - Diarrhoea [Unknown]
  - Pyrexia [Unknown]
  - Colitis [Unknown]
  - Anal incontinence [Unknown]
  - Somnolence [Unknown]
